FAERS Safety Report 12705426 (Version 1)
Quarter: 2016Q3

REPORT INFORMATION
  Report Type: Spontaneous
  Country: US (occurrence: None)
  Receive Date: 20160831
  Receipt Date: 20160831
  Transmission Date: 20161109
  Serious: Yes (Hospitalization, Other)
  Sender: FDA-Public Use
  Company Number: None

PATIENT
  Age: 68 Year
  Sex: Female
  Weight: 88.45 kg

DRUGS (11)
  1. ATORVASTATIN [Concomitant]
     Active Substance: ATORVASTATIN
  2. PRAMIPEXOLE. [Concomitant]
     Active Substance: PRAMIPEXOLE
  3. IRON WITH VITAMIN C [Concomitant]
  4. METOPROLOL ER SUCCINATE [Suspect]
     Active Substance: METOPROLOL SUCCINATE
     Indication: ARRHYTHMIA
     Route: 048
     Dates: start: 20160601, end: 20160814
  5. SYNTHROID [Concomitant]
     Active Substance: LEVOTHYROXINE SODIUM
  6. COALESCE [Concomitant]
  7. TYLENOL [Concomitant]
     Active Substance: ACETAMINOPHEN
  8. WALKER [Concomitant]
  9. PRADAXA [Concomitant]
     Active Substance: DABIGATRAN ETEXILATE MESYLATE
  10. CENTRUM SILVER [Concomitant]
     Active Substance: MINERALS\VITAMINS
  11. FLUXOTINE [Concomitant]
     Active Substance: FLUOXETINE HYDROCHLORIDE

REACTIONS (5)
  - Sternal fracture [None]
  - Fall [None]
  - Balance disorder [None]
  - Bradycardia [None]
  - Hip fracture [None]

NARRATIVE: CASE EVENT DATE: 20160801
